FAERS Safety Report 10188509 (Version 2)
Quarter: 2015Q2

REPORT INFORMATION
  Report Type: Spontaneous
  Country: US (occurrence: US)
  Receive Date: 20140522
  Receipt Date: 20150604
  Transmission Date: 20150821
  Serious: No
  Sender: FDA-Public Use
  Company Number: US-SA-2014SA031896

PATIENT
  Age: 52 Year
  Sex: Male

DRUGS (2)
  1. LANTUS SOLOSTAR [Suspect]
     Active Substance: INSULIN GLARGINE
     Indication: TYPE 2 DIABETES MELLITUS
     Dosage: DOSE:10 UNIT(S)
     Route: 065
     Dates: start: 20140307
  2. SOLOSTAR [Concomitant]
     Active Substance: DEVICE
     Dates: start: 20140307

REACTIONS (5)
  - Blood glucose increased [Unknown]
  - Abdominal distension [Unknown]
  - Abdominal discomfort [Unknown]
  - Blood glucose decreased [Unknown]
  - Tremor [Unknown]

NARRATIVE: CASE EVENT DATE: 201403
